FAERS Safety Report 13139282 (Version 7)
Quarter: 2017Q2

REPORT INFORMATION
  Report Type: Spontaneous
  Country: US (occurrence: US)
  Receive Date: 20170123
  Receipt Date: 20170606
  Transmission Date: 20170830
  Serious: Yes (Death, Hospitalization)
  Sender: FDA-Public Use
  Company Number: US-BAYER-2017-012873

PATIENT
  Age: 52 Year
  Sex: Female
  Weight: 60.77 kg

DRUGS (13)
  1. ADEMPAS [Suspect]
     Active Substance: RIOCIGUAT
     Indication: PRODUCT USED FOR UNKNOWN INDICATION
     Dosage: UNK
  2. ALBUTEROL. [Concomitant]
     Active Substance: ALBUTEROL
     Dosage: UNK
  3. DIGOXIN. [Concomitant]
     Active Substance: DIGOXIN
     Dosage: UNK
  4. DILTIAZEM. [Concomitant]
     Active Substance: DILTIAZEM
     Dosage: UNK
  5. SYMBICORT [Concomitant]
     Active Substance: BUDESONIDE\FORMOTEROL FUMARATE DIHYDRATE
     Dosage: UNK
  6. AMBRISENTAN [Suspect]
     Active Substance: AMBRISENTAN
     Indication: PULMONARY ARTERIAL HYPERTENSION
     Dosage: 5 MG, QD
     Route: 065
     Dates: start: 20150922
  7. COLECALCIFEROL [Concomitant]
     Active Substance: CHOLECALCIFEROL
     Dosage: UNK
  8. COUMADIN [Concomitant]
     Active Substance: WARFARIN SODIUM
     Dosage: UNK
  9. ENOXAPARIN [Concomitant]
     Active Substance: ENOXAPARIN
     Dosage: UNK
  10. SPIRIVA [Concomitant]
     Active Substance: TIOTROPIUM BROMIDE MONOHYDRATE
     Dosage: UNK
  11. AMBRISENTAN [Suspect]
     Active Substance: AMBRISENTAN
     Indication: PULMONARY ARTERIAL HYPERTENSION
     Dosage: 10 MG, QD
     Route: 065
  12. FLOLAN [Suspect]
     Active Substance: EPOPROSTENOL SODIUM
     Indication: PRODUCT USED FOR UNKNOWN INDICATION
     Dosage: UNK
     Dates: start: 20170405
  13. UPTRAVI [Suspect]
     Active Substance: SELEXIPAG
     Indication: PRODUCT USED FOR UNKNOWN INDICATION
     Dosage: 1600 ?G, BID
     Route: 065

REACTIONS (20)
  - Oedema peripheral [None]
  - Renal disorder [Unknown]
  - Myalgia [None]
  - Pain in extremity [None]
  - Headache [None]
  - Abdominal pain [Not Recovered/Not Resolved]
  - Cardiac failure [Fatal]
  - Nausea [None]
  - Abdominal distension [Not Recovered/Not Resolved]
  - Limb discomfort [None]
  - Fluid retention [Unknown]
  - Catheterisation cardiac [Unknown]
  - Hospitalisation [None]
  - Burning sensation [None]
  - Feeling abnormal [Not Recovered/Not Resolved]
  - Peripheral swelling [Recovering/Resolving]
  - Swelling [None]
  - Diarrhoea [Recovering/Resolving]
  - Vomiting [None]
  - Hypotension [None]

NARRATIVE: CASE EVENT DATE: 20170110
